FAERS Safety Report 5874915-1 (Version None)
Quarter: 2008Q3

REPORT INFORMATION
  Report Type: 
  Country: None (occurrence: None)
  Receive Date: 20080909
  Receipt Date: 20080901
  Transmission Date: 20090109
  Serious: Yes (Hospitalization)
  Sender: FDA-Public Use
  Company Number: JP-AMGEN-US305981

PATIENT
  Age: 66 Year
  Sex: Female

DRUGS (4)
  1. ENBREL [Suspect]
     Indication: RHEUMATOID ARTHRITIS
     Route: 058
     Dates: start: 20070401
  2. PREDNISOLONE [Concomitant]
     Dosage: NOT PROVIDED
     Route: 048
  3. BONALON [Concomitant]
     Dosage: 35 MG TABLET, DOSE AND FREQUENCY NOT PROVIDED
     Route: 048
  4. RHEUMATREX [Concomitant]
     Dosage: NOT PROVIDED
     Route: 048

REACTIONS (1)
  - TUBERCULOSIS [None]
